FAERS Safety Report 8555554-0 (Version None)
Quarter: 2012Q3

REPORT INFORMATION
  Report Type: 
  Country: None (occurrence: None)
  Receive Date: 20120731
  Receipt Date: 20120203
  Transmission Date: 20120928
  Serious: No
  Sender: FDA-Public Use
  Company Number: US-ASTRAZENECA-2011SE00172

PATIENT
  Age: 34 Year
  Sex: Female
  Weight: 99.8 kg

DRUGS (20)
  1. SEROQUEL [Suspect]
     Indication: BIPOLAR I DISORDER
     Route: 048
     Dates: start: 20060101
  2. SEROQUEL [Suspect]
     Indication: BIPOLAR DISORDER
     Route: 048
     Dates: start: 20060101
  3. SEROQUEL [Suspect]
     Route: 048
     Dates: start: 20100101, end: 20100101
  4. SEROQUEL [Suspect]
     Route: 048
     Dates: start: 20100101, end: 20100101
  5. SEROQUEL [Suspect]
     Route: 048
     Dates: start: 20100101, end: 20100101
  6. SEROQUEL [Suspect]
     Route: 048
  7. SEROQUEL [Suspect]
     Route: 048
  8. SEROQUEL [Suspect]
     Route: 048
  9. SEROQUEL [Suspect]
     Indication: DEPRESSION
     Route: 048
     Dates: start: 20060101
  10. SEROQUEL [Suspect]
     Route: 048
     Dates: start: 20100101, end: 20100101
  11. SEROQUEL [Suspect]
     Route: 048
     Dates: start: 20100101, end: 20100101
  12. SEROQUEL [Suspect]
     Route: 048
  13. SEROQUEL [Suspect]
     Route: 048
     Dates: start: 20100101, end: 20100101
  14. BENADRYL [Concomitant]
     Indication: PRURITUS
  15. SEROQUEL [Suspect]
     Route: 048
     Dates: start: 20100101, end: 20100101
  16. SEROQUEL [Suspect]
     Route: 048
     Dates: start: 20100101, end: 20100101
  17. SEROQUEL [Suspect]
     Route: 048
     Dates: start: 20100101, end: 20100101
  18. SEROQUEL [Suspect]
     Route: 048
  19. SEROQUEL [Suspect]
     Route: 048
  20. XANAX [Concomitant]
     Indication: NERVOUSNESS

REACTIONS (18)
  - AGITATION [None]
  - FEELING HOT [None]
  - FATIGUE [None]
  - EMOTIONAL DISORDER [None]
  - MALAISE [None]
  - NAUSEA [None]
  - VOMITING [None]
  - DRUG DOSE OMISSION [None]
  - CRYING [None]
  - INSOMNIA [None]
  - FORMICATION [None]
  - HYPERSOMNIA [None]
  - DRUG WITHDRAWAL SYNDROME [None]
  - INFLUENZA LIKE ILLNESS [None]
  - CHILLS [None]
  - PRURITUS GENERALISED [None]
  - SKIN LESION [None]
  - AGGRESSION [None]
